FAERS Safety Report 7526516-7 (Version None)
Quarter: 2011Q2

REPORT INFORMATION
  Report Type: 
  Country: None (occurrence: None)
  Receive Date: 20110606
  Receipt Date: 20110524
  Transmission Date: 20111010
  Serious: Yes (Other)
  Sender: FDA-Public Use
  Company Number: US-UCBSA-032170

PATIENT
  Age: 35 Year
  Sex: Female
  Weight: 55 kg

DRUGS (13)
  1. GABAPENTIN [Concomitant]
     Indication: EPILEPSY
     Route: 048
     Dates: start: 20110330
  2. VIMPAT [Suspect]
     Route: 048
     Dates: start: 20110404, end: 20110101
  3. PHENOBARBITAL TAB [Concomitant]
     Indication: EPILEPSY
     Dates: start: 20100401, end: 20100101
  4. ZONISAMIDE [Concomitant]
  5. VIMPAT [Suspect]
     Route: 048
     Dates: end: 20110401
  6. TOPAMAX [Concomitant]
     Dates: start: 20101210
  7. IBUPROFEN [Concomitant]
     Indication: PAIN
     Dates: start: 20110328
  8. SERTRALINE HYDROCHLORIDE [Concomitant]
  9. PHENOBARBITAL TAB [Concomitant]
     Dates: start: 20101017
  10. PHENOBARBITAL TAB [Concomitant]
     Dates: start: 20100501, end: 20100101
  11. DEPO-PROVERA [Concomitant]
     Indication: HORMONE LEVEL ABNORMAL
     Dosage: MONTHLY
     Dates: start: 20100625
  12. CYCLOBENZAPRINE [Concomitant]
     Indication: PAIN
     Dates: start: 20110311
  13. TOPAMAX [Concomitant]
     Indication: EPILEPSY
     Dates: start: 20070501

REACTIONS (4)
  - CHEST DISCOMFORT [None]
  - ABNORMAL SENSATION IN EYE [None]
  - PALPITATIONS [None]
  - DYSPNOEA [None]
